FAERS Safety Report 14415717 (Version 1)
Quarter: 2018Q1

REPORT INFORMATION
  Report Type: Spontaneous
  Country: US (occurrence: US)
  Receive Date: 20180122
  Receipt Date: 20180122
  Transmission Date: 20180509
  Serious: No
  Sender: FDA-Public Use
  Company Number: US-NEUROCRINE BIOSCIENCES INC.-2017NBI01606

PATIENT
  Age: 71 Year
  Sex: Female
  Weight: 58.97 kg

DRUGS (11)
  1. INGREZZA [Suspect]
     Active Substance: VALBENAZINE
     Indication: TARDIVE DYSKINESIA
     Route: 048
     Dates: start: 20171025, end: 20171031
  2. INGREZZA [Suspect]
     Active Substance: VALBENAZINE
     Route: 048
     Dates: start: 20171101, end: 20171115
  3. PROTONIX [Concomitant]
     Active Substance: PANTOPRAZOLE SODIUM
  4. BACLOFEN. [Concomitant]
     Active Substance: BACLOFEN
     Dosage: PRN
  5. SINGULAIR [Concomitant]
     Active Substance: MONTELUKAST SODIUM
  6. AMANTADINE. [Concomitant]
     Active Substance: AMANTADINE HYDROCHLORIDE
  7. LEXAPRO [Concomitant]
     Active Substance: ESCITALOPRAM OXALATE
  8. ARICEPT [Concomitant]
     Active Substance: DONEPEZIL HYDROCHLORIDE
  9. NAMENDA [Concomitant]
     Active Substance: MEMANTINE HYDROCHLORIDE
  10. TYLENOL [Concomitant]
     Active Substance: ACETAMINOPHEN
  11. DIAZEPAM. [Concomitant]
     Active Substance: DIAZEPAM

REACTIONS (2)
  - Drug ineffective [None]
  - Tardive dyskinesia [Unknown]

NARRATIVE: CASE EVENT DATE: 2017
